FAERS Safety Report 4983044-0 (Version None)
Quarter: 2006Q2

REPORT INFORMATION
  Report Type: 
  Country: None (occurrence: None)
  Receive Date: 20060419
  Receipt Date: 20060405
  Transmission Date: 20061013
  Serious: Yes (Death, Hospitalization)
  Sender: FDA-Public Use
  Company Number: 2006MP000534

PATIENT
  Age: 26 Year
  Sex: Female

DRUGS (2)
  1. GLIADEL [Suspect]
     Indication: GLIOMA
     Dosage: 38.5 MG; X1; ICER
     Dates: start: 20060315, end: 20060315
  2. DEXAMETHASONE [Concomitant]

REACTIONS (3)
  - BRAIN HERNIATION [None]
  - BRAIN OEDEMA [None]
  - CEREBRAL INFARCTION [None]
